FAERS Safety Report 15360129 (Version 1)
Quarter: 2018Q3

REPORT INFORMATION
  Report Type: Spontaneous
  Country: CZ (occurrence: CZ)
  Receive Date: 20180907
  Receipt Date: 20180907
  Transmission Date: 20181010
  Serious: Yes (Life-Threatening, Hospitalization)
  Sender: FDA-Public Use
  Company Number: CZ-ROCHE-2181480

PATIENT
  Age: 32 Year
  Sex: Female
  Weight: 43 kg

DRUGS (2)
  1. OCREVUS [Suspect]
     Active Substance: OCRELIZUMAB
     Indication: MULTIPLE SCLEROSIS
     Dosage: MOST RECENT DOSE PRIOR TO THE EVENT 27/JUL/2018
     Route: 041
     Dates: start: 20180711, end: 20180727
  2. HELICID [Concomitant]
     Active Substance: OMEPRAZOLE
     Indication: DYSPEPSIA
     Route: 048
     Dates: start: 201807, end: 201808

REACTIONS (1)
  - Meningoencephalitis herpetic [Recovering/Resolving]

NARRATIVE: CASE EVENT DATE: 201808
